FAERS Safety Report 16014262 (Version 7)
Quarter: 2019Q2

REPORT INFORMATION
  Report Type: Report from Study
  Country: BR (occurrence: BR)
  Receive Date: 20190227
  Receipt Date: 20190625
  Transmission Date: 20190711
  Serious: Yes (Hospitalization, Other)
  Sender: FDA-Public Use
  Company Number: BR-SEATTLE GENETICS-2019SGN00425

PATIENT
  Sex: Female
  Weight: 115 kg

DRUGS (13)
  1. LEVOTHYROXINE SODIUM. [Concomitant]
     Active Substance: LEVOTHYROXINE SODIUM
     Dosage: 150 MILLIGRAM
     Route: 048
  2. LEVOTHYROXINE. [Concomitant]
     Active Substance: LEVOTHYROXINE
     Dosage: UNK
     Route: 065
  3. MULTIVITAMINS [Concomitant]
     Active Substance: VITAMINS
     Dosage: UNK
     Route: 065
  4. FOLIC ACID. [Concomitant]
     Active Substance: FOLIC ACID
     Dosage: UNK
     Route: 065
  5. ACICLOVIR [Concomitant]
     Active Substance: ACYCLOVIR
     Dosage: UNK
     Route: 065
  6. LEVOTHYROXINE SODIUM. [Concomitant]
     Active Substance: LEVOTHYROXINE SODIUM
     Dosage: 25 MILLIGRAM
     Route: 048
  7. SERTRALINE [Concomitant]
     Active Substance: SERTRALINE HYDROCHLORIDE
     Dosage: UNK
     Route: 065
  8. ONDANSETRON HYDROCHLORIDE. [Concomitant]
     Active Substance: ONDANSETRON HYDROCHLORIDE
     Dosage: UNK
     Route: 065
  9. LEVOTHYROXINE SODIUM. [Concomitant]
     Active Substance: LEVOTHYROXINE SODIUM
     Indication: HYPOTHYROIDISM
     Dosage: 112 MICROGRAM
     Route: 048
  10. BACTRIM [Concomitant]
     Active Substance: SULFAMETHOXAZOLE\TRIMETHOPRIM
     Dosage: UNK
     Route: 065
  11. BRENTUXIMAB VEDOTIN-MPI [Suspect]
     Active Substance: BRENTUXIMAB VEDOTIN
     Indication: HODGKIN^S DISEASE
     Dosage: 200 MG, UNK
     Route: 042
     Dates: start: 20190110
  12. ALLOPURINOL. [Concomitant]
     Active Substance: ALLOPURINOL
     Dosage: UNK
     Route: 065
  13. ZOLPIDEM [Concomitant]
     Active Substance: ZOLPIDEM\ZOLPIDEM TARTRATE
     Dosage: UNK
     Route: 065

REACTIONS (18)
  - Dehydration [Unknown]
  - Flatulence [Not Recovered/Not Resolved]
  - Gastrooesophageal reflux disease [Unknown]
  - Weight decreased [Not Recovered/Not Resolved]
  - Vomiting [Not Recovered/Not Resolved]
  - Gastrointestinal disorder [Not Recovered/Not Resolved]
  - Panic disorder [Unknown]
  - Candida infection [Not Recovered/Not Resolved]
  - Feeding disorder [Unknown]
  - Nausea [Not Recovered/Not Resolved]
  - Frequent bowel movements [Unknown]
  - Malaise [Unknown]
  - Diarrhoea [Unknown]
  - Hepatic pain [Unknown]
  - Insomnia [Not Recovered/Not Resolved]
  - Renal impairment [Unknown]
  - Constipation [Unknown]
  - Dysuria [Unknown]

NARRATIVE: CASE EVENT DATE: 2019
